FAERS Safety Report 14171595 (Version 3)
Quarter: 2017Q4

REPORT INFORMATION
  Report Type: Spontaneous
  Country: FR (occurrence: FR)
  Receive Date: 20171108
  Receipt Date: 20171121
  Transmission Date: 20180321
  Serious: Yes (Hospitalization)
  Sender: FDA-Public Use
  Company Number: FR-ABBVIE-17P-056-2157658-00

PATIENT
  Age: 20 Month
  Sex: Male

DRUGS (4)
  1. PROPANOLOL [Concomitant]
     Active Substance: PROPRANOLOL HYDROCHLORIDE
     Indication: PRODUCT USED FOR UNKNOWN INDICATION
     Route: 048
     Dates: start: 20171013
  2. DEPAKINE [Suspect]
     Active Substance: VALPROATE SODIUM
     Dosage: DOSE OF 10 MG /KG /DAY; IE 45 MG X 3 / DAY EQUALS TO 135 MG/ DAY
     Route: 048
  3. VELBE [Concomitant]
     Active Substance: VINBLASTINE SULFATE
     Indication: PRODUCT USED FOR UNKNOWN INDICATION
     Route: 065
  4. DEPAKINE [Suspect]
     Active Substance: VALPROATE SODIUM
     Indication: EPENDYMOMA MALIGNANT
     Dosage: DOSE OF 4.5 ML THREE TIMES A DAY EQUAL TO 900MG THREE TIMES A DAY EQUAL TO 2700 MG/DAY
     Route: 048
     Dates: start: 20171024, end: 20171027

REACTIONS (8)
  - Drug prescribing error [Unknown]
  - Somnolence [Recovered/Resolved]
  - Prescribed overdose [Unknown]
  - Medication error [Unknown]
  - Product use in unapproved indication [Unknown]
  - Drug level increased [Recovered/Resolved]
  - Incorrect dose administered [Unknown]
  - Coma [Recovered/Resolved]

NARRATIVE: CASE EVENT DATE: 20171024
